FAERS Safety Report 9183981 (Version 1)
Quarter: 2012Q4

REPORT INFORMATION
  Report Type: 
  Country: US (occurrence: US)
  Receive Date: 20121031
  Receipt Date: 20121031
  Transmission Date: 20130627
  Serious: Yes (Hospitalization)
  Sender: FDA-Public Use
  Company Number: US-ELI_LILLY_AND_COMPANY-US201210006084

PATIENT
  Age: 9 Year
  Sex: Male

DRUGS (3)
  1. HUMALOG LISPRO [Suspect]
     Dosage: UNK
  2. HUMALOG LISPRO [Suspect]
     Dosage: 20 u, UNK
  3. LANTUS [Concomitant]
     Indication: DIABETES MELLITUS
     Dosage: UNK
     Route: 058

REACTIONS (5)
  - Ketoacidosis [Unknown]
  - Hyperglycaemia [Unknown]
  - Nasopharyngitis [Not Recovered/Not Resolved]
  - Sinusitis [Not Recovered/Not Resolved]
  - Blood glucose increased [Not Recovered/Not Resolved]
